FAERS Safety Report 4686396-4 (Version None)
Quarter: 2005Q2

REPORT INFORMATION
  Report Type: 
  Country: None (occurrence: None)
  Receive Date: 20050606
  Receipt Date: 20050523
  Transmission Date: 20051028
  Serious: Yes (Hospitalization, Other)
  Sender: FDA-Public Use
  Company Number: DE_050515949

PATIENT
  Age: 75 Year
  Sex: Male

DRUGS (4)
  1. YENTREVE (DULOXETINE HYDROCHLORIDE) [Suspect]
     Indication: URINARY INCONTINENCE
     Dosage: 40 MG/2 DAY
  2. ATACAND [Concomitant]
  3. HCT VON CT (HYDROCLOROTHIAZIDE) [Concomitant]
  4. HERZASS ^RATIOPHARM^ (ACETYLSALICYLIC ACID) [Concomitant]

REACTIONS (7)
  - ARRHYTHMIA [None]
  - DIZZINESS [None]
  - DRUG INTERACTION [None]
  - FALL [None]
  - FATIGUE [None]
  - HAEMATOMA [None]
  - HYPOTENSION [None]
